FAERS Safety Report 7577037-7 (Version None)
Quarter: 2011Q2

REPORT INFORMATION
  Report Type: 
  Country: None (occurrence: None)
  Receive Date: 20110628
  Receipt Date: 20110622
  Transmission Date: 20111010
  Serious: No
  Sender: FDA-Public Use
  Company Number: US-PFIZER INC-2011139575

PATIENT
  Sex: Male
  Weight: 114 kg

DRUGS (8)
  1. ATENOLOL [Concomitant]
     Indication: BLOOD PRESSURE
     Dosage: 50 MG, DAILY
  2. NORVASC [Concomitant]
     Indication: BLOOD PRESSURE
     Dosage: 5 MG, DAILY
  3. GLIPIZIDE [Concomitant]
     Indication: DIABETES MELLITUS
     Dosage: 5 MG, DAILY
  4. LISINOPRIL [Concomitant]
     Indication: PROPHYLAXIS
  5. LIPITOR [Suspect]
     Indication: BLOOD CHOLESTEROL INCREASED
     Dosage: 10 MG, DAILY
     Dates: start: 20110616, end: 20110621
  6. FLOMAX [Concomitant]
     Indication: PROSTATE CANCER
     Dosage: 0.4 MG, DAILY
  7. LISINOPRIL [Concomitant]
     Indication: PROSTATE CANCER
     Dosage: 10 MG, DAILY
  8. HYDROCHLOROTHIAZIDE [Concomitant]
     Indication: DIURETIC THERAPY
     Dosage: 25 MG, DAILY

REACTIONS (4)
  - DIARRHOEA [None]
  - ABDOMINAL PAIN UPPER [None]
  - HEADACHE [None]
  - MALAISE [None]
